FAERS Safety Report 9223138 (Version 2)
Quarter: 2013Q3

REPORT INFORMATION
  Report Type: Spontaneous
  Country: US (occurrence: US)
  Receive Date: 20130410
  Receipt Date: 20130802
  Transmission Date: 20140515
  Serious: Yes (Hospitalization, Other)
  Sender: FDA-Public Use
  Company Number: US-ASTRAZENECA-2013SE20513

PATIENT
  Age: 78 Year
  Sex: Female
  Weight: 108 kg

DRUGS (2)
  1. ARIMIDEX [Suspect]
     Indication: BREAST CANCER FEMALE
     Route: 048
     Dates: start: 20120927, end: 20130319
  2. MANY UNSPECIFIED [Concomitant]

REACTIONS (1)
  - Asthma [Recovering/Resolving]
